FAERS Safety Report 7492246-3 (Version None)
Quarter: 2011Q2

REPORT INFORMATION
  Report Type: 
  Country: None (occurrence: None)
  Receive Date: 20110519
  Receipt Date: 20110107
  Transmission Date: 20111010
  Serious: No
  Sender: FDA-Public Use
  Company Number: US-NOVEN-11US001554

PATIENT
  Sex: Male

DRUGS (6)
  1. ENTOCORT EC [Concomitant]
     Indication: GASTROINTESTINAL DISORDER
     Dosage: 324 MG, BID
     Route: 048
  2. DIGESTIVE ENZYMES [Concomitant]
     Indication: GASTROINTESTINAL DISORDER
     Dosage: UNK,TID WITH MEALS
     Route: 048
  3. DAYTRANA [Suspect]
     Indication: ATTENTION DEFICIT/HYPERACTIVITY DISORDER
     Dosage: 10 MG, 1X/DAY: QD
     Route: 062
     Dates: start: 20110101
  4. PENTASA [Concomitant]
     Indication: PRODUCT USED FOR UNKNOWN INDICATION
     Dosage: 1 TABLET, QD
     Route: 048
  5. ^VITAMINS^ [Concomitant]
     Indication: PRODUCT USED FOR UNKNOWN INDICATION
     Dosage: UNK
     Route: 048
  6. MIRALAX [Concomitant]
     Indication: CONSTIPATION
     Dosage: 2 TSP, QD
     Route: 048

REACTIONS (5)
  - DRUG DOSE OMISSION [None]
  - OFF LABEL USE [None]
  - NO ADVERSE EVENT [None]
  - WRONG TECHNIQUE IN DRUG USAGE PROCESS [None]
  - PRODUCT QUALITY ISSUE [None]
